FAERS Safety Report 26134013 (Version 1)
Quarter: 2025Q4

REPORT INFORMATION
  Report Type: Spontaneous
  Country: US (occurrence: US)
  Receive Date: 20251209
  Receipt Date: 20251209
  Transmission Date: 20260118
  Serious: Yes (Life-Threatening, Hospitalization)
  Sender: DR REDDYS
  Company Number: None

PATIENT
  Age: 42 Year
  Sex: Male

DRUGS (1)
  1. CLOZAPINE [Suspect]
     Active Substance: CLOZAPINE
     Indication: Schizoaffective disorder bipolar type
     Dosage: MISSING THREE DOSES OF NIGHTLY CLOZAPINE

REACTIONS (6)
  - Psychotic disorder [Recovering/Resolving]
  - Cholinergic rebound syndrome [Recovering/Resolving]
  - Serotonin syndrome [Recovering/Resolving]
  - Drug withdrawal syndrome [Recovering/Resolving]
  - Treatment noncompliance [Recovering/Resolving]
  - Skin laceration [Unknown]
